FAERS Safety Report 9890434 (Version 4)
Quarter: 2014Q4

REPORT INFORMATION
  Report Type: Report from Study
  Country: CA (occurrence: CA)
  Receive Date: 20140212
  Receipt Date: 20141030
  Transmission Date: 20150529
  Serious: Yes (Death)
  Sender: FDA-Public Use
  Company Number: CA-ROCHE-1250832

PATIENT
  Age: 69 Year
  Sex: Male
  Weight: 121.3 kg

DRUGS (11)
  1. ZOFRAN [Concomitant]
     Active Substance: ONDANSETRON HYDROCHLORIDE
     Indication: NAUSEA
     Route: 065
     Dates: start: 20130517, end: 20130705
  2. ZANTAC [Concomitant]
     Active Substance: RANITIDINE HYDROCHLORIDE
     Indication: PREMEDICATION
     Route: 065
     Dates: start: 20130613, end: 20130704
  3. RITUXIMAB [Suspect]
     Active Substance: RITUXIMAB
     Indication: DIFFUSE LARGE B-CELL LYMPHOMA
     Dosage: DATE OF MOST RECENT DOSE PRIOR TO SAE: 04/JUL/2013 (CONCENTRATION: 3MG/ML, VOLUME: 293.75ML)
     Route: 042
     Dates: start: 20130517
  4. TYLENOL [Concomitant]
     Active Substance: ACETAMINOPHEN
     Indication: PREMEDICATION
     Route: 065
     Dates: start: 20130517, end: 20130704
  5. CYCLOPHOSPHAMIDE. [Suspect]
     Active Substance: CYCLOPHOSPHAMIDE
     Indication: DIFFUSE LARGE B-CELL LYMPHOMA
     Dosage: DATE OF MOSE RECENT DOSE PRIOR TO SAE: 04/JUL/2013
     Route: 042
     Dates: start: 20130517
  6. PREDNISONE. [Suspect]
     Active Substance: PREDNISONE
     Indication: DIFFUSE LARGE B-CELL LYMPHOMA
     Dosage: DATE OF MOST RECENT DOSE PRIOR TO SAE: 08/JUL/2013
     Route: 048
     Dates: start: 20130517
  7. BENADRYL [Concomitant]
     Active Substance: DIPHENHYDRAMINE HYDROCHLORIDE
     Indication: PREMEDICATION
     Route: 065
     Dates: start: 20130517, end: 20130704
  8. DOXORUBICINE [Suspect]
     Active Substance: DOXORUBICIN
     Indication: DIFFUSE LARGE B-CELL LYMPHOMA
     Dosage: DATE OF MOST RECENT DOSE PRIOR TO SAE: 04/JUL/2013
     Route: 042
     Dates: start: 20130517
  9. CEFPROZIL. [Concomitant]
     Active Substance: CEFPROZIL
     Indication: LOWER RESPIRATORY TRACT INFECTION
     Route: 065
     Dates: start: 20130627, end: 20130706
  10. VALACYCLOVIR [Concomitant]
     Active Substance: VALACYCLOVIR HYDROCHLORIDE
     Indication: HERPES ZOSTER
     Route: 065
     Dates: start: 20130716, end: 20130716
  11. VINCRISTINE [Suspect]
     Active Substance: VINCRISTINE
     Indication: DIFFUSE LARGE B-CELL LYMPHOMA
     Dosage: DATE OF MOST RECENT DOSE PRIOR TO SAE: 04/JUL/2013
     Route: 042
     Dates: start: 20130517

REACTIONS (1)
  - Death [Fatal]

NARRATIVE: CASE EVENT DATE: 20130716
